FAERS Safety Report 18321204 (Version 4)
Quarter: 2020Q4

REPORT INFORMATION
  Report Type: Report from Study
  Country: SA (occurrence: SA)
  Receive Date: 20200929
  Receipt Date: 20201028
  Transmission Date: 20210113
  Serious: Yes (Hospitalization, Other)
  Sender: FDA-Public Use
  Company Number: SA-CELLTRION INC.-2019SA027833

PATIENT

DRUGS (21)
  1. REMSIMA [Suspect]
     Active Substance: INFLIXIMAB
     Dosage: 322.5 MG IN 250 ML NS OD FOR 1 DAY (5MG/KG; WEIGHT: 64.5 KG)
     Route: 042
     Dates: start: 20190115, end: 20190115
  2. REMSIMA [Suspect]
     Active Substance: INFLIXIMAB
     Dosage: 322.5 MG IN 250 ML NS OD FOR 1 DAY (5MG/KG; WEIGHT: 64.5 KG - MOST ACCURATE AND 65.9 KG)
     Route: 042
     Dates: start: 20190213, end: 20190213
  3. PARACETAMOL [Concomitant]
     Active Substance: ACETAMINOPHEN
     Indication: ANALGESIC THERAPY
     Dosage: 1000 MG, STAT
     Route: 042
     Dates: start: 20191126, end: 20191126
  4. METHYLPREDNISOLONE. [Concomitant]
     Active Substance: METHYLPREDNISOLONE
     Indication: PRODUCT USED FOR UNKNOWN INDICATION
     Dosage: UNK
     Route: 030
     Dates: start: 20191226
  5. REMSIMA [Suspect]
     Active Substance: INFLIXIMAB
     Indication: CROHN^S DISEASE
     Dosage: 300 MG (5 MG/KG) (WEIGHT: 55KG), EVERY 0, 2, 6, 8 WEEKS
     Route: 042
     Dates: start: 20181110
  6. REMSIMA [Suspect]
     Active Substance: INFLIXIMAB
     Dosage: 322.5 MG IN 250 ML NS OD FOR 1 DAY (5MG/KG; WEIGHT: 64.5 KG)
     Route: 042
     Dates: start: 20190519, end: 20190519
  7. REMSIMA [Suspect]
     Active Substance: INFLIXIMAB
     Dosage: 308.5 MG EVERY 0,2,6 WEEKS (5MG/KG; WEIGHT: 61.7KG) )
     Route: 042
     Dates: start: 20200101, end: 20200101
  8. PREDNISOLONE. [Concomitant]
     Active Substance: PREDNISOLONE
     Indication: INFLAMMATORY BOWEL DISEASE
     Dosage: 40 MG,Q24H
     Route: 048
     Dates: start: 20191125, end: 20191227
  9. HYDROCORTISONE SODIUM SUCCINATE [Concomitant]
     Active Substance: HYDROCORTISONE SODIUM SUCCINATE
     Dosage: 100 MG,STAT
     Route: 042
     Dates: start: 20190213, end: 20190213
  10. METRONIDAZOLE. [Concomitant]
     Active Substance: METRONIDAZOLE
     Indication: ANTIBIOTIC PROPHYLAXIS
     Dosage: 500 MG, STAT
     Route: 042
     Dates: start: 20200107, end: 20200107
  11. CIPROFLOXACIN LACTATE [Concomitant]
     Active Substance: CIPROFLOXACIN LACTATE
     Indication: ANTIBIOTIC PROPHYLAXIS
     Dosage: 200 MG, STAT
     Route: 042
     Dates: start: 20200107, end: 20200107
  12. OMEPRAZOLE. [Concomitant]
     Active Substance: OMEPRAZOLE
     Indication: PROPHYLAXIS
     Dosage: 40 MG, 1 IN 1 D
     Route: 042
     Dates: start: 20200107, end: 20200109
  13. METHYLPREDNISOLONE SODIUM SUCCINATE. [Concomitant]
     Active Substance: METHYLPREDNISOLONE SODIUM SUCCINATE
     Indication: INFLAMMATORY BOWEL DISEASE
     Dosage: 60 MG,STAT
     Route: 030
     Dates: start: 20191126, end: 20191126
  14. REMSIMA [Suspect]
     Active Substance: INFLIXIMAB
     Dosage: 322.5 MG IN 250 ML NS OD FOR 1 DAY (5MG/KG; WEIGHT: 64.5 KG)
     Route: 042
     Dates: start: 20190911, end: 20190911
  15. HYDROCORTISONE SODIUM SUCCINATE [Concomitant]
     Active Substance: HYDROCORTISONE SODIUM SUCCINATE
     Indication: PREMEDICATION
     Dosage: 100 MG,STAT
     Route: 042
     Dates: start: 20181204, end: 20181204
  16. HYDROCORTISONE SODIUM SUCCINATE [Concomitant]
     Active Substance: HYDROCORTISONE SODIUM SUCCINATE
     Dosage: 100 MG,STAT
     Route: 042
     Dates: start: 20190519, end: 20190519
  17. HYDROCORTISONE SODIUM SUCCINATE [Concomitant]
     Active Substance: HYDROCORTISONE SODIUM SUCCINATE
     Dosage: 100 MG,STAT
     Route: 042
     Dates: start: 20190115, end: 20190115
  18. HYDROCORTISONE SODIUM SUCCINATE [Concomitant]
     Active Substance: HYDROCORTISONE SODIUM SUCCINATE
     Dosage: 100 MG,STAT
     Route: 042
     Dates: start: 20190911, end: 20190911
  19. HYDROCORTISONE SODIUM SUCCINATE [Concomitant]
     Active Substance: HYDROCORTISONE SODIUM SUCCINATE
     Dosage: 100 MG,STAT
     Route: 042
     Dates: start: 20200101, end: 20200101
  20. REMSIMA [Suspect]
     Active Substance: INFLIXIMAB
     Dosage: 296.5 MG (5MG/KG; WEIGHT: 59.3 KG)
     Route: 042
     Dates: start: 20181204, end: 20181204
  21. PARACETAMOL [Concomitant]
     Active Substance: ACETAMINOPHEN
     Dosage: 1000 MG, STAT
     Route: 042
     Dates: start: 20200107, end: 20200107

REACTIONS (11)
  - Fistula [Recovering/Resolving]
  - Infection [Unknown]
  - Overdose [Unknown]
  - Abdominal pain [Recovered/Resolved]
  - Treatment failure [Recovering/Resolving]
  - Therapeutic response decreased [Unknown]
  - Pyrexia [Recovered/Resolved]
  - Colitis [Recovered/Resolved]
  - Lymphadenopathy [Recovered/Resolved]
  - Crohn^s disease [Recovered/Resolved]
  - Product use issue [Unknown]

NARRATIVE: CASE EVENT DATE: 20191126
